FAERS Safety Report 7059865-X (Version None)
Quarter: 2010Q4

REPORT INFORMATION
  Report Type: 
  Country: None (occurrence: None)
  Receive Date: 20101025
  Receipt Date: 20101012
  Transmission Date: 20110411
  Serious: Yes (Hospitalization)
  Sender: FDA-Public Use
  Company Number: PHHY2010DK69213

PATIENT
  Sex: Female

DRUGS (1)
  1. RITALIN [Suspect]
     Indication: ATTENTION DEFICIT/HYPERACTIVITY DISORDER
     Dosage: 150 MG, (30 MG AT 6 A.M, 9 A.M 12 MIDDAY, 15 P.M AND 18 P.M)

REACTIONS (5)
  - ANXIETY [None]
  - CONFUSIONAL STATE [None]
  - DIZZINESS [None]
  - OVERDOSE [None]
  - TREMOR [None]
